FAERS Safety Report 5748590-0 (Version None)
Quarter: 2008Q2

REPORT INFORMATION
  Report Type: 
  Country: None (occurrence: None)
  Receive Date: 20080521
  Receipt Date: 20080512
  Transmission Date: 20081010
  Serious: Yes (Other)
  Sender: FDA-Public Use
  Company Number: 163-20785-08050693

PATIENT
  Age: 61 Year
  Sex: Female

DRUGS (2)
  1. THALOMID [Suspect]
     Indication: MULTIPLE MYELOMA
     Dosage: 50 MG, 1 IN 1 D, ORAL; 200 MG, 1 IN 1 D, ORAL
     Route: 048
     Dates: start: 20060822, end: 20060801
  2. THALOMID [Suspect]
     Indication: MULTIPLE MYELOMA
     Dosage: 50 MG, 1 IN 1 D, ORAL; 200 MG, 1 IN 1 D, ORAL
     Route: 048
     Dates: start: 20060929, end: 20080201

REACTIONS (2)
  - BONE NEOPLASM MALIGNANT [None]
  - DISEASE RECURRENCE [None]
